FAERS Safety Report 4349718-X (Version None)
Quarter: 2004Q1

REPORT INFORMATION
  Report Type: 
  Country: None (occurrence: None)
  Receive Date: 20040329
  Receipt Date: 20040126
  Transmission Date: 20041129
  Serious: No
  Sender: FDA-Public Use
  Company Number: USA040157536

PATIENT
  Age: 7 Year
  Sex: Female
  Weight: 39 kg

DRUGS (2)
  1. STRATTERA [Suspect]
     Indication: PSYCHOMOTOR HYPERACTIVITY
     Dosage: 40 MG
     Dates: start: 20040124
  2. ADDERALL 10 [Concomitant]

REACTIONS (2)
  - FEELING ABNORMAL [None]
  - SKIN DISCOLOURATION [None]
